FAERS Safety Report 12673326 (Version 1)
Quarter: 2016Q3

REPORT INFORMATION
  Report Type: Spontaneous
  Country: ID (occurrence: ID)
  Receive Date: 20160822
  Receipt Date: 20160822
  Transmission Date: 20161109
  Serious: Yes (Hospitalization, Other)
  Sender: FDA-Public Use
  Company Number: ID-GLAXOSMITHKLINE-ID2016GSK120383

PATIENT

DRUGS (1)
  1. CATAFLAM [Suspect]
     Active Substance: DICLOFENAC POTASSIUM
     Indication: MIGRAINE

REACTIONS (1)
  - Haematemesis [Unknown]
